FAERS Safety Report 6472850-1 (Version None)
Quarter: 2009Q4

REPORT INFORMATION
  Report Type: 
  Country: None (occurrence: None)
  Receive Date: 20091203
  Receipt Date: 20090616
  Transmission Date: 20100525
  Serious: No
  Sender: FDA-Public Use
  Company Number: US-AMGEN-KDL324566

PATIENT
  Sex: Male

DRUGS (2)
  1. ENBREL [Suspect]
     Indication: PSORIATIC ARTHROPATHY
     Route: 058
     Dates: start: 20080301
  2. METHOTREXATE [Concomitant]
     Dates: start: 20080401

REACTIONS (3)
  - DENTAL CARIES [None]
  - GINGIVAL PAIN [None]
  - SENSITIVITY OF TEETH [None]
